FAERS Safety Report 4825146-5 (Version None)
Quarter: 2005Q4

REPORT INFORMATION
  Report Type: 
  Country: None (occurrence: None)
  Receive Date: 20051109
  Receipt Date: 20051031
  Transmission Date: 20060501
  Serious: Yes (Death)
  Sender: FDA-Public Use
  Company Number: GXKR2005GB01894

PATIENT
  Age: 89 Year
  Sex: Female
  Weight: 65 kg

DRUGS (4)
  1. ASPIRIN [Suspect]
     Indication: ATRIAL FIBRILLATION
     Dosage: 75 MG, QD, ORAL
     Route: 048
  2. ARTHROTEC [Suspect]
     Indication: OSTEOARTHRITIS
     Dosage: BID, ORAL
     Route: 048
  3. PARAETAMOL (PARACETAMOL) [Concomitant]
  4. LEVOTHYROXINE SODIUM [Concomitant]

REACTIONS (1)
  - GASTRIC ULCER PERFORATION [None]
